FAERS Safety Report 24551116 (Version 4)
Quarter: 2025Q2

REPORT INFORMATION
  Report Type: Spontaneous
  Country: US (occurrence: US)
  Receive Date: 20241025
  Receipt Date: 20250613
  Transmission Date: 20250717
  Serious: Yes (Other)
  Sender: BAUSCH AND LOMB
  Company Number: US-BAUSCH-BL-2024-015766

PATIENT
  Age: 74 Year
  Sex: Male

DRUGS (3)
  1. UCERIS [Suspect]
     Active Substance: BUDESONIDE
     Indication: Colitis
     Route: 054
     Dates: start: 2024
  2. UCERIS [Suspect]
     Active Substance: BUDESONIDE
     Dosage: DAILY, ONCE A DAY AT BEDTIME
     Route: 054
     Dates: start: 202412
  3. BUDESONIDE [Concomitant]
     Active Substance: BUDESONIDE
     Indication: Product used for unknown indication
     Route: 048

REACTIONS (10)
  - Colitis ulcerative [Unknown]
  - Muscle spasms [Unknown]
  - Extra dose administered [Unknown]
  - Product dose omission in error [Unknown]
  - Therapeutic product effect variable [Unknown]
  - Device issue [Unknown]
  - Product delivery mechanism issue [Unknown]
  - Product substitution issue [Unknown]
  - Device loosening [Unknown]
  - Product availability issue [Unknown]

NARRATIVE: CASE EVENT DATE: 20241001
